FAERS Safety Report 4459495-X (Version None)
Quarter: 2004Q3

REPORT INFORMATION
  Report Type: 
  Country: None (occurrence: None)
  Receive Date: 20040910
  Receipt Date: 20040806
  Transmission Date: 20050211
  Serious: Yes (Other)
  Sender: FDA-Public Use
  Company Number: 2004225285US

PATIENT

DRUGS (1)
  1. BEXTRA [Suspect]
     Dosage: 10 MG, QD

REACTIONS (4)
  - BRAIN OEDEMA [None]
  - OEDEMA PERIPHERAL [None]
  - RECTAL HAEMORRHAGE [None]
  - WEIGHT INCREASED [None]
